FAERS Safety Report 9413114 (Version 2)
Quarter: 2013Q3

REPORT INFORMATION
  Report Type: Spontaneous
  Country: JP (occurrence: JP)
  Receive Date: 20130722
  Receipt Date: 20130821
  Transmission Date: 20140515
  Serious: Yes (Hospitalization)
  Sender: FDA-Public Use
  Company Number: JP-UCBSA-087853

PATIENT
  Age: 15 Year
  Sex: Male
  Weight: 28 kg

DRUGS (8)
  1. E KEPPRA [Suspect]
     Indication: CONVULSION
     Route: 048
     Dates: start: 20130513, end: 20130521
  2. PHENOBARBITAL [Concomitant]
     Route: 048
     Dates: start: 20090622
  3. EXCEGRAN [Concomitant]
     Route: 048
  4. ALEVIATIN [Concomitant]
     Route: 048
  5. ONON [Concomitant]
     Route: 048
  6. ALESION [Concomitant]
     Route: 048
     Dates: start: 20080312
  7. GASTER [Concomitant]
     Route: 048
     Dates: start: 20080312
  8. TERNELIN [Concomitant]
     Route: 048

REACTIONS (2)
  - Oxygen saturation decreased [Recovered/Resolved]
  - Somnolence [Recovered/Resolved]
